FAERS Safety Report 7119955-X (Version None)
Quarter: 2010Q4

REPORT INFORMATION
  Report Type: 
  Country: None (occurrence: None)
  Receive Date: 20101123
  Receipt Date: 20101118
  Transmission Date: 20110411
  Serious: Yes (Other)
  Sender: FDA-Public Use
  Company Number: CHPA2010SE17947

PATIENT
  Sex: Male

DRUGS (1)
  1. NICOTINELL GUM 2 MG FRUIT (NCH) [Suspect]
     Indication: SMOKING CESSATION THERAPY
     Dosage: 2 MG, UNK, ^FOR SOME YEARS^
     Route: 048

REACTIONS (3)
  - ENDODONTIC PROCEDURE [None]
  - INTENTIONAL DRUG MISUSE [None]
  - TOOTHACHE [None]
